FAERS Safety Report 8623107-1 (Version None)
Quarter: 2012Q3

REPORT INFORMATION
  Report Type: 
  Country: None (occurrence: None)
  Receive Date: 20120813
  Receipt Date: 20120801
  Transmission Date: 20120928
  Serious: Yes (Disabling, Other)
  Sender: FDA-Public Use
  Company Number: ACO_31358_2012

PATIENT
  Age: 52 Year
  Sex: Female
  Weight: 62.1 kg

DRUGS (8)
  1. AMPYRA [Suspect]
     Indication: GAIT DISTURBANCE
     Dosage: 10 MG, BID, ORAL ; 10 MG, BID, ORAL
     Route: 048
     Dates: start: 20120709, end: 20120723
  2. AMPYRA [Suspect]
     Indication: GAIT DISTURBANCE
     Dosage: 10 MG, BID, ORAL ; 10 MG, BID, ORAL
     Route: 048
     Dates: start: 20120801
  3. HYDROCODONE BITARTRATE [Concomitant]
  4. LAMICTAL [Concomitant]
  5. ERGOCALCIFEROL [Concomitant]
  6. JUICE PLUS (AMYLASE, ASCORBIC ACID, CELLULASE, FOLIC ACID, LIPASE, PRO [Concomitant]
  7. AVONEX [Concomitant]
  8. DULOXETINE HYDROCHLORIDE [Concomitant]

REACTIONS (10)
  - ARTHRALGIA [None]
  - LIMB INJURY [None]
  - ASTHENIA [None]
  - MANIA [None]
  - PAIN IN EXTREMITY [None]
  - MENTAL DISORDER [None]
  - COGNITIVE DISORDER [None]
  - SOCIAL PROBLEM [None]
  - ABASIA [None]
  - MOVEMENT DISORDER [None]
